FAERS Safety Report 9039095 (Version 5)
Quarter: 2014Q2

REPORT INFORMATION
  Report Type: Spontaneous
  Country: US (occurrence: US)
  Receive Date: 20130129
  Receipt Date: 20140509
  Transmission Date: 20141212
  Serious: Yes (Other)
  Sender: FDA-Public Use
  Company Number: US-009507513-1301USA012076

PATIENT
  Sex: Male
  Weight: 102.49 kg

DRUGS (5)
  1. PROPECIA [Suspect]
     Indication: ANDROGENETIC ALOPECIA
     Dosage: 1 MG, QD
     Route: 048
     Dates: start: 20110712, end: 20120109
  2. PROPECIA [Suspect]
     Dosage: 1 MG, QD
     Route: 048
     Dates: start: 20100429, end: 20120109
  3. ZOLOFT [Concomitant]
     Indication: DYSTHYMIC DISORDER
     Dosage: 50 MG, UNK
     Route: 048
     Dates: start: 20100903
  4. AMBIEN [Concomitant]
     Dosage: 10 MG, PRN
     Route: 048
     Dates: start: 20100615
  5. XANAX [Concomitant]
     Dosage: 0.5 MG, PRN
     Route: 048
     Dates: start: 20100615

REACTIONS (15)
  - Mixed deafness [Unknown]
  - Cognitive disorder [Not Recovered/Not Resolved]
  - Hypogonadism [Unknown]
  - Blood testosterone decreased [Unknown]
  - Depression [Unknown]
  - Erectile dysfunction [Unknown]
  - Sexual dysfunction [Not Recovered/Not Resolved]
  - Arrhythmia [Unknown]
  - Rhinitis allergic [Unknown]
  - Asthma [Unknown]
  - Acute sinusitis [Unknown]
  - Otitis media [Unknown]
  - Eustachian tube dysfunction [Unknown]
  - Intentional overdose [Unknown]
  - Anxiety [Unknown]
